FAERS Safety Report 4570209-5 (Version None)
Quarter: 2005Q1

REPORT INFORMATION
  Report Type: 
  Country: None (occurrence: None)
  Receive Date: 20050126
  Receipt Date: 20050126
  Transmission Date: 20050727
  Serious: Yes (Hospitalization)
  Sender: FDA-Public Use
  Company Number: None

PATIENT
  Age: 79 Year
  Sex: Male
  Weight: 74.3899 kg

DRUGS (2)
  1. METOPROLOL [Suspect]
     Indication: HYPERTENSION
     Dosage: 100 MG BID
     Dates: start: 20040730, end: 20041117
  2. LISINOPRIL [Suspect]
     Indication: HYPERTENSION
     Dosage: 20 MG DAILY
     Dates: start: 20031201, end: 20041117

REACTIONS (3)
  - ASTHENIA [None]
  - DIZZINESS [None]
  - HYPOTENSION [None]
